FAERS Safety Report 8264183-8 (Version None)
Quarter: 2012Q2

REPORT INFORMATION
  Report Type: 
  Country: None (occurrence: None)
  Receive Date: 20120403
  Receipt Date: 20120327
  Transmission Date: 20120825
  Serious: Yes (Hospitalization, Disabling, Other)
  Sender: FDA-Public Use
  Company Number: 2011SP030647

PATIENT
  Age: 33 Year
  Sex: Female
  Weight: 81.1939 kg

DRUGS (4)
  1. MIRENA [Suspect]
     Indication: PRODUCT USED FOR UNKNOWN INDICATION
     Dates: end: 20090810
  2. PHENDIMETRAZINE FUMARATE [Concomitant]
  3. NUVARING [Suspect]
     Indication: CONTRACEPTION
     Dates: start: 20060501, end: 20090801
  4. NUVARING [Suspect]
     Indication: CONTRACEPTION
     Dates: start: 20070501, end: 20090801

REACTIONS (50)
  - PULMONARY EMBOLISM [None]
  - HYPERTENSION [None]
  - PHARYNGITIS [None]
  - SINUS POLYP [None]
  - DYSPHONIA [None]
  - LARYNGITIS [None]
  - PANIC ATTACK [None]
  - PANIC DISORDER [None]
  - HEAD INJURY [None]
  - CELLULITIS [None]
  - PULMONARY HYPERTENSION [None]
  - SOMNOLENCE [None]
  - OROPHARYNGEAL PAIN [None]
  - CYST [None]
  - SIMPLEX VIRUS TEST POSITIVE [None]
  - MUSCLE SPASMS [None]
  - MUSCULOSKELETAL PAIN [None]
  - ARTHRALGIA [None]
  - SNORING [None]
  - INSOMNIA [None]
  - VENTRICULAR HYPERTROPHY [None]
  - MYALGIA [None]
  - CAROTID ARTERY OCCLUSION [None]
  - MUSCULOSKELETAL CHEST PAIN [None]
  - LUNG NEOPLASM [None]
  - SCAR [None]
  - UPPER-AIRWAY COUGH SYNDROME [None]
  - ACUTE SINUSITIS [None]
  - CHONDROMALACIA [None]
  - REFLUX LARYNGITIS [None]
  - INTERNATIONAL NORMALISED RATIO DECREASED [None]
  - ANXIETY [None]
  - BACK INJURY [None]
  - TONSILLITIS [None]
  - ARTHROPOD BITE [None]
  - TRICUSPID VALVE INCOMPETENCE [None]
  - AORTIC VALVE INCOMPETENCE [None]
  - BLOOD TRIGLYCERIDES INCREASED [None]
  - TENDONITIS [None]
  - MYOSITIS [None]
  - AGORAPHOBIA [None]
  - JOINT INJURY [None]
  - ORAL SURGERY [None]
  - TACHYCARDIA [None]
  - MUCOUS MEMBRANE DISORDER [None]
  - OSTEOARTHRITIS [None]
  - ATELECTASIS [None]
  - OBESITY [None]
  - CERVICAL DYSPLASIA [None]
  - OBSTRUCTIVE AIRWAYS DISORDER [None]
